FAERS Safety Report 11804831 (Version 3)
Quarter: 2016Q1

REPORT INFORMATION
  Report Type: Spontaneous
  Country: US (occurrence: US)
  Receive Date: 20151205
  Receipt Date: 20160111
  Transmission Date: 20160525
  Serious: Yes (Other)
  Sender: FDA-Public Use
  Company Number: US-ASTRAZENECA-2015SF18625

PATIENT
  Age: 880 Month
  Sex: Female
  Weight: 60.3 kg

DRUGS (19)
  1. ARMOUR THYROID [Concomitant]
     Active Substance: THYROID, PORCINE
     Indication: THYROID DISORDER
     Route: 048
  2. CALCIUM [Concomitant]
     Active Substance: CALCIUM
     Indication: OSTEOPENIA
     Route: 048
  3. ESTRACE [Concomitant]
     Active Substance: ESTRADIOL
     Indication: URINARY TRACT INFECTION
     Dosage: THREE TIMES A WEEK
     Route: 066
  4. TUDORZA PRESSAIR [Suspect]
     Active Substance: ACLIDINIUM BROMIDE
     Indication: EMPHYSEMA
     Dosage: 400 MCG, 1 PUFF TWICE DAILY
     Route: 055
  5. COLLAGEN [Concomitant]
     Active Substance: COLLAGEN
     Indication: SKIN HAEMORRHAGE
     Route: 048
     Dates: start: 2015
  6. GARLIC. [Concomitant]
     Active Substance: GARLIC
     Indication: URINARY TRACT INFECTION
     Route: 048
  7. XOPENEX [Concomitant]
     Active Substance: LEVALBUTEROL HYDROCHLORIDE
     Indication: THERAPEUTIC EMESIS
     Dosage: 3 TO 4 TIMES A DAY
     Route: 055
  8. NIACIN. [Concomitant]
     Active Substance: NIACIN
     Indication: CARDIOVASCULAR DISORDER
     Route: 048
     Dates: start: 2012
  9. TUDORZA PRESSAIR [Suspect]
     Active Substance: ACLIDINIUM BROMIDE
     Indication: EMPHYSEMA
     Route: 055
     Dates: start: 20151111
  10. TRIAMCINOLONE [Concomitant]
     Active Substance: TRIAMCINOLONE
     Indication: RASH PRURITIC
     Dosage: AS REQUIRED
     Route: 061
  11. BIOTIN [Concomitant]
     Active Substance: BIOTIN
     Dosage: DAILY
     Route: 048
  12. TUDORZA PRESSAIR [Suspect]
     Active Substance: ACLIDINIUM BROMIDE
     Indication: EMPHYSEMA
     Route: 055
     Dates: start: 201511
  13. DULERA [Concomitant]
     Active Substance: FORMOTEROL FUMARATE DIHYDRATE\MOMETASONE FUROATE
     Indication: EMPHYSEMA
     Route: 055
  14. RYTHMOL [Concomitant]
     Active Substance: PROPAFENONE HYDROCHLORIDE
     Indication: ARRHYTHMIA
  15. GINKGO BILOBA [Concomitant]
     Active Substance: GINKGO
     Indication: MEMORY IMPAIRMENT
     Dosage: DAILY
     Route: 048
  16. GLUCOSAMINE CHONDROITIN [Concomitant]
     Active Substance: CHONDROITIN SULFATE (BOVINE)\GLUCOSAMINE HYDROCHLORIDE
     Dosage: TWO TIMES A DAY
     Route: 048
  17. ARMOUR THYROID [Concomitant]
     Active Substance: THYROID, PORCINE
     Indication: THYROID DISORDER
     Route: 048
  18. ASPIRIN. [Concomitant]
     Active Substance: ASPIRIN
     Indication: ARRHYTHMIA
     Route: 048
  19. SPIRIVA [Concomitant]
     Active Substance: TIOTROPIUM BROMIDE MONOHYDRATE

REACTIONS (11)
  - Urinary incontinence [Unknown]
  - Headache [Unknown]
  - Intentional product misuse [Unknown]
  - Pulmonary mass [Unknown]
  - Cardiac flutter [Unknown]
  - Heart rate increased [Unknown]
  - Oxygen consumption increased [Unknown]
  - Dyspnoea [Unknown]
  - Arrhythmia [Unknown]
  - Dementia [Unknown]
  - Pollakiuria [Unknown]

NARRATIVE: CASE EVENT DATE: 201511
